FAERS Safety Report 8301729-5 (Version None)
Quarter: 2012Q2

REPORT INFORMATION
  Report Type: 
  Country: None (occurrence: None)
  Receive Date: 20120420
  Receipt Date: 20120411
  Transmission Date: 20120825
  Serious: Yes (Hospitalization)
  Sender: FDA-Public Use
  Company Number: US-ACTELION-A-US2012-64198

PATIENT

DRUGS (5)
  1. TRACLEER [Suspect]
     Indication: PULMONARY HYPERTENSION
     Route: 048
  2. TYVASO [Suspect]
     Dosage: UNK
     Route: 055
     Dates: start: 20090910
  3. METOPROLOL TARTRATE [Concomitant]
  4. COUMADIN [Concomitant]
  5. REVATIO [Suspect]
     Route: 048

REACTIONS (7)
  - DIZZINESS [None]
  - CARDIAC DISORDER [None]
  - FALL [None]
  - CHEST DISCOMFORT [None]
  - BLOOD PRESSURE ABNORMAL [None]
  - SYNCOPE [None]
  - HYPOTENSION [None]
